FAERS Safety Report 19908363 (Version 2)
Quarter: 2022Q1

REPORT INFORMATION
  Report Type: Spontaneous
  Country: US (occurrence: US)
  Receive Date: 20211002
  Receipt Date: 20220106
  Transmission Date: 20220423
  Serious: Yes (Other)
  Sender: FDA-Public Use
  Company Number: US-GLENMARK PHARMACEUTICALS-2021GMK067150

PATIENT

DRUGS (1)
  1. ESTRADIOL [Suspect]
     Active Substance: ESTRADIOL
     Indication: Vulvovaginal dryness
     Dosage: 1 DOSAGE FORM (ONE TABLET TWICE A WEEK)
     Route: 067
     Dates: start: 202106

REACTIONS (6)
  - Vulvovaginal injury [Unknown]
  - Injury associated with device [Unknown]
  - Vulvovaginal pain [Unknown]
  - Vulvovaginal discomfort [Unknown]
  - Device extrusion [Unknown]
  - Device physical property issue [Unknown]
